FAERS Safety Report 4413156-1 (Version None)
Quarter: 2004Q3

REPORT INFORMATION
  Report Type: 
  Country: None (occurrence: None)
  Receive Date: 20040730
  Receipt Date: 20040730
  Transmission Date: 20050211
  Serious: Yes (Hospitalization)
  Sender: FDA-Public Use
  Company Number: None

PATIENT
  Sex: Female
  Weight: 49.8957 kg

DRUGS (3)
  1. PREMARIN [Suspect]
     Dosage: 14-THRU 25 12 DAYS
     Dates: start: 19860101, end: 19950101
  2. PROVERA [Suspect]
     Dosage: 14-THRU 25 12 DAYS
     Dates: start: 19860101, end: 19950101
  3. SELDANE [Concomitant]

REACTIONS (3)
  - ARRHYTHMIA [None]
  - BREAST CANCER [None]
  - CHOLELITHIASIS [None]
